FAERS Safety Report 10068138 (Version 1)
Quarter: 2014Q2

REPORT INFORMATION
  Report Type: Spontaneous
  Country: US (occurrence: US)
  Receive Date: 20140409
  Receipt Date: 20140409
  Transmission Date: 20141212
  Serious: No
  Sender: FDA-Public Use
  Company Number: US-PFIZER INC-2014095497

PATIENT
  Sex: Male

DRUGS (3)
  1. XALATAN [Suspect]
     Dosage: UNK
  2. COSOPT [Concomitant]
     Dosage: UNK
  3. ALPHAGAN [Concomitant]
     Dosage: UNK

REACTIONS (1)
  - Blood pressure increased [Unknown]
